FAERS Safety Report 21817308 (Version 1)
Quarter: 2023Q1

REPORT INFORMATION
  Report Type: Spontaneous
  Country: US (occurrence: US)
  Receive Date: 20230104
  Receipt Date: 20230104
  Transmission Date: 20230418
  Serious: Yes (Hospitalization)
  Sender: FDA-Public Use
  Company Number: US-ARBOR PHARMACEUTICALS, LLC-US-2023ARB000005

PATIENT
  Sex: Male

DRUGS (15)
  1. IVERMECTIN [Suspect]
     Active Substance: IVERMECTIN
     Indication: COVID-19 prophylaxis
     Dosage: UNK
  2. IVERMECTIN [Suspect]
     Active Substance: IVERMECTIN
     Dosage: ESCALATING DAILY DOSES FOR THE PAST 6 MONTHS (UP TO 100 MG)
  3. HERBALS\WITHANIA SOMNIFERA ROOT [Suspect]
     Active Substance: HERBALS\WITHANIA SOMNIFERA ROOT
     Indication: Infection prophylaxis
     Dosage: UNK
  4. ARCTOSTAPHYLOS UVA-URSI LEAF [Suspect]
     Active Substance: ARCTOSTAPHYLOS UVA-URSI LEAF
     Indication: Infection prophylaxis
     Dosage: UNK
  5. HERBALS [Suspect]
     Active Substance: HERBALS
     Indication: Infection prophylaxis
     Dosage: UNK
  6. SERRAPEPTASE [Suspect]
     Active Substance: SERRAPEPTASE
     Indication: Infection prophylaxis
     Dosage: UNK
  7. HERBALS [Suspect]
     Active Substance: HERBALS
     Indication: Infection prophylaxis
     Dosage: UNK
  8. DIETARY SUPPLEMENT\HERBALS [Suspect]
     Active Substance: DIETARY SUPPLEMENT\HERBALS
     Indication: Infection prophylaxis
     Dosage: UNK
  9. HERBALS [Suspect]
     Active Substance: HERBALS
     Indication: Infection prophylaxis
     Dosage: UNK
  10. FUCUS VESICULOSUS [Suspect]
     Active Substance: FUCUS VESICULOSUS
     Indication: Infection prophylaxis
     Dosage: UNK
  11. DANDELION [Suspect]
     Active Substance: TARAXACUM OFFICINALE POLLEN
     Indication: Infection prophylaxis
     Dosage: UNK
  12. URTICA DIOICA LEAF [Suspect]
     Active Substance: URTICA DIOICA LEAF
     Indication: Infection prophylaxis
     Dosage: UNK
  13. NIACIN [Suspect]
     Active Substance: NIACIN
     Indication: Infection prophylaxis
     Dosage: UNK
  14. DIETARY SUPPLEMENT [Suspect]
     Active Substance: DIETARY SUPPLEMENT
     Indication: Infection prophylaxis
     Dosage: UNK
  15. OLANZAPINE [Concomitant]
     Active Substance: OLANZAPINE
     Indication: Product used for unknown indication
     Dosage: UNK

REACTIONS (3)
  - Hepatic failure [Recovered/Resolved]
  - Prescription drug used without a prescription [Unknown]
  - Intentional product use issue [Unknown]
